FAERS Safety Report 8340327-4 (Version None)
Quarter: 2012Q2

REPORT INFORMATION
  Report Type: 
  Country: None (occurrence: None)
  Receive Date: 20120507
  Receipt Date: 20120507
  Transmission Date: 20120825
  Serious: Yes (Other)
  Sender: FDA-Public Use
  Company Number: None

PATIENT
  Age: 64 Year
  Sex: Female
  Weight: 77.11 kg

DRUGS (1)
  1. IMURAN [Suspect]
     Indication: RHEUMATOID ARTHRITIS
     Dosage: |DOSAGETEXT: 50MG   3||STRENGTH: 50MG||FREQ: ONCE A DAY||ROUTE: ORAL|
     Route: 048
     Dates: start: 20120201, end: 20120205

REACTIONS (1)
  - SOMNOLENCE [None]
